FAERS Safety Report 6526211-7 (Version None)
Quarter: 2009Q4

REPORT INFORMATION
  Report Type: 
  Country: None (occurrence: None)
  Receive Date: 20091228
  Receipt Date: 20091217
  Transmission Date: 20100525
  Serious: Yes (Other)
  Sender: FDA-Public Use
  Company Number: 234971J09USA

PATIENT
  Age: 46 Year
  Sex: Female
  Weight: 104 kg

DRUGS (3)
  1. REBIF [Suspect]
     Indication: MULTIPLE SCLEROSIS
     Dosage: 44 MCG, 3 IN 1 WEEKS, SUBCUTANEOUS
     Route: 058
     Dates: start: 20050614, end: 20090901
  2. ACTOS [Concomitant]
  3. UNSPECIFIED ANTIHYPERTENSIVE MEDICATION (ALL OTHER THERAPEUTIC PRODUCT [Concomitant]

REACTIONS (5)
  - CONDITION AGGRAVATED [None]
  - MULTIPLE SCLEROSIS [None]
  - NERVE COMPRESSION [None]
  - OPTIC NERVE DISORDER [None]
  - PITUITARY TUMOUR [None]
